FAERS Safety Report 4473860-6 (Version None)
Quarter: 2004Q4

REPORT INFORMATION
  Report Type: 
  Country: None (occurrence: None)
  Receive Date: 20041008
  Receipt Date: 20041008
  Transmission Date: 20050328
  Serious: Yes (Hospitalization)
  Sender: FDA-Public Use
  Company Number: None

PATIENT
  Age: 69 Year
  Sex: Male
  Weight: 79 kg

DRUGS (1)
  1. HYDROODONE/APAP 10/500 [Suspect]
     Indication: PAIN
     Dosage: 1 TID ORAL
     Route: 048
     Dates: start: 20030903, end: 20040926

REACTIONS (5)
  - ABDOMINAL PAIN [None]
  - ALCOHOLISM [None]
  - FALL [None]
  - LIVER FUNCTION TEST ABNORMAL [None]
  - OVERDOSE [None]
